FAERS Safety Report 11691524 (Version 1)
Quarter: 2015Q4

REPORT INFORMATION
  Report Type: Spontaneous
  Country: VE (occurrence: VE)
  Receive Date: 20151102
  Receipt Date: 20151102
  Transmission Date: 20160304
  Serious: Yes (Hospitalization)
  Sender: FDA-Public Use
  Company Number: PHHY2015VE122655

PATIENT
  Sex: Female

DRUGS (5)
  1. DICLOFEN//DICLOFENAC POTASSIUM [Concomitant]
     Indication: PAIN IN EXTREMITY
  2. DICLOFEN//DICLOFENAC POTASSIUM [Concomitant]
     Indication: INFLAMMATION
  3. BIOTALOL [Concomitant]
     Indication: HYPERTENSION
     Dosage: 10 MG, QD
     Route: 065
  4. DIOVAN HCT [Suspect]
     Active Substance: HYDROCHLOROTHIAZIDE\VALSARTAN
     Indication: HYPERTENSION
     Route: 065
  5. DIOVAN [Suspect]
     Active Substance: VALSARTAN
     Indication: HYPERTENSION
     Dosage: 640 MG, QD
     Route: 048

REACTIONS (5)
  - Temperature intolerance [Recovered/Resolved]
  - Anxiety [Unknown]
  - Hypotension [Recovered/Resolved]
  - Nervousness [Recovered/Resolved]
  - Wrong drug administered [Unknown]
